FAERS Safety Report 6240794-6 (Version None)
Quarter: 2009Q2

REPORT INFORMATION
  Report Type: 
  Country: None (occurrence: None)
  Receive Date: 20090623
  Receipt Date: 20090616
  Transmission Date: 20091009
  Serious: Yes (Hospitalization)
  Sender: FDA-Public Use
  Company Number: JP-WYE-H09807709

PATIENT
  Age: 16 Year
  Sex: Female

DRUGS (1)
  1. ZOSYN [Suspect]
     Indication: DRUG USE FOR UNKNOWN INDICATION
     Dosage: 4.5 G
     Route: 041
     Dates: start: 20090502, end: 20090502

REACTIONS (1)
  - GENERALISED ERYTHEMA [None]
